FAERS Safety Report 4317174-3 (Version None)
Quarter: 2004Q1

REPORT INFORMATION
  Report Type: 
  Country: None (occurrence: None)
  Receive Date: 20040312
  Receipt Date: 20040302
  Transmission Date: 20041129
  Serious: No
  Sender: FDA-Public Use
  Company Number: 2003UW15531

PATIENT
  Age: 64 Year
  Sex: Female
  Weight: 86.1834 kg

DRUGS (6)
  1. PRILOSEC [Suspect]
     Indication: DYSPEPSIA
     Dosage: 1 TABLET DAILY PO
     Route: 048
     Dates: start: 20031104, end: 20031107
  2. PRILOSEC [Suspect]
     Indication: DYSPEPSIA
     Dosage: 1 TABLET DAILY PO
     Route: 048
     Dates: start: 20031118, end: 20031118
  3. PRAVACHOL [Concomitant]
  4. SYNTHROID [Concomitant]
  5. ZOLOFT [Concomitant]
  6. ALLEGRA [Concomitant]

REACTIONS (12)
  - ASTHENIA [None]
  - COLD SWEAT [None]
  - DIZZINESS [None]
  - DYSPNOEA [None]
  - ERYTHEMA [None]
  - GENERALISED OEDEMA [None]
  - HYPERHIDROSIS [None]
  - HYPERSENSITIVITY [None]
  - HYPOTENSION [None]
  - PRURITUS [None]
  - RASH [None]
  - URTICARIA [None]
